FAERS Safety Report 5258520-6 (Version None)
Quarter: 2007Q1

REPORT INFORMATION
  Report Type: 
  Country: None (occurrence: None)
  Receive Date: 20070308
  Receipt Date: 20061221
  Transmission Date: 20070707
  Serious: Yes (Death, Hospitalization, Other)
  Sender: FDA-Public Use
  Company Number: IT-BAYER-200710743GDS

PATIENT
  Age: 55 Year
  Sex: Male
  Weight: 58 kg

DRUGS (11)
  1. SORAFENIB [Suspect]
     Indication: SARCOMA
     Dosage: TOTAL DAILY DOSE: 800 MG
     Route: 048
     Dates: start: 20061213, end: 20070117
  2. SORAFENIB [Suspect]
     Dosage: TOTAL DAILY DOSE: 800 MG
     Route: 048
     Dates: start: 20061202, end: 20061211
  3. NISTATIN [Concomitant]
     Indication: STOMATITIS
     Route: 065
  4. DEXAMETHASONE [Concomitant]
     Indication: DYSPNOEA
     Route: 048
     Dates: start: 20061211
  5. OMEPRAZOLE [Concomitant]
     Indication: PROPHYLAXIS
     Route: 048
  6. MORFIN [Concomitant]
     Indication: DYSPNOEA
     Route: 042
  7. MORFIN [Concomitant]
     Route: 048
  8. TRAMADOL HCL [Concomitant]
     Indication: PAIN
     Route: 048
     Dates: start: 20061201, end: 20061211
  9. PREDNISONE [Concomitant]
     Indication: DYSPNOEA
     Route: 048
     Dates: start: 20061201, end: 20061211
  10. LORAZEPAM [Concomitant]
     Indication: INSOMNIA
     Route: 048
  11. OXYGEN [Concomitant]
     Indication: DYSPNOEA
     Route: 055
     Dates: start: 20061211

REACTIONS (6)
  - ANOREXIA [None]
  - DISEASE PROGRESSION [None]
  - DYSPNOEA [None]
  - GENERAL PHYSICAL HEALTH DETERIORATION [None]
  - HOSPITALISATION [None]
  - SARCOMA [None]
